FAERS Safety Report 8133901-1 (Version None)
Quarter: 2012Q1

REPORT INFORMATION
  Report Type: 
  Country: None (occurrence: None)
  Receive Date: 20120213
  Receipt Date: 20120202
  Transmission Date: 20120608
  Serious: Yes (Hospitalization, Other)
  Sender: FDA-Public Use
  Company Number: CA-ASTRAZENECA-2012SE07337

PATIENT
  Age: 63 Year
  Sex: Female

DRUGS (8)
  1. LORAZEPAM [Concomitant]
     Indication: SLEEP DISORDER
     Route: 048
  2. RAN-RABEPRAZOLE [Concomitant]
     Indication: GASTROOESOPHAGEAL REFLUX DISEASE
     Route: 048
  3. METFORMIN HCL [Concomitant]
     Indication: DIABETES MELLITUS
     Route: 048
  4. BETA HISTAMINE [Concomitant]
     Indication: EAR DISCOMFORT
     Route: 048
  5. AMITRIPTYLINE HCL [Concomitant]
     Indication: MUSCULOSKELETAL DISCOMFORT
     Route: 048
  6. HYDROCHLOROTHIAZIDE [Concomitant]
     Indication: HYPERTENSION
     Route: 048
  7. CRESTOR [Suspect]
     Indication: HYPERCHOLESTEROLAEMIA
     Route: 048
     Dates: start: 20120131
  8. ATACAND [Suspect]
     Indication: HYPERTENSION
     Route: 048

REACTIONS (3)
  - CONGENITAL CYSTIC KIDNEY DISEASE [None]
  - BLOOD GLUCOSE INCREASED [None]
  - RENAL CANCER [None]
